FAERS Safety Report 7422777-3 (Version None)
Quarter: 2011Q2

REPORT INFORMATION
  Report Type: 
  Country: None (occurrence: None)
  Receive Date: 20110414
  Receipt Date: 20110414
  Transmission Date: 20111010
  Serious: Yes (Hospitalization)
  Sender: FDA-Public Use
  Company Number: None

PATIENT
  Age: 53 Year
  Sex: Female
  Weight: 98.4306 kg

DRUGS (1)
  1. RECLAST [Suspect]
     Indication: OSTEOPOROSIS
     Dosage: 5MG ONCE A YEAR IV
     Route: 042
     Dates: start: 20110130

REACTIONS (7)
  - BACK PAIN [None]
  - NAUSEA [None]
  - ABDOMINAL PAIN [None]
  - FLANK PAIN [None]
  - PYREXIA [None]
  - VOMITING [None]
  - URINE OUTPUT DECREASED [None]
